FAERS Safety Report 5094026-5 (Version None)
Quarter: 2006Q3

REPORT INFORMATION
  Report Type: 
  Country: None (occurrence: None)
  Receive Date: 20060829
  Receipt Date: 20060829
  Transmission Date: 20061208
  Serious: Yes (Hospitalization)
  Sender: FDA-Public Use
  Company Number: None

PATIENT
  Sex: Male

DRUGS (2)
  1. OXALIPLATIN [Suspect]
     Indication: LUNG NEOPLASM MALIGNANT
     Dosage: 85 MG/M2 IV D1+15
     Route: 042
     Dates: start: 20060712
  2. DOCETAXEL [Suspect]
     Indication: LUNG NEOPLASM MALIGNANT
     Dosage: 30 MG/M2 IV D1+8
     Route: 042
     Dates: start: 20060712

REACTIONS (3)
  - DEHYDRATION [None]
  - DIARRHOEA [None]
  - ORAL INTAKE REDUCED [None]
